FAERS Safety Report 6837548-6 (Version None)
Quarter: 2010Q3

REPORT INFORMATION
  Report Type: 
  Country: None (occurrence: None)
  Receive Date: 20100713
  Receipt Date: 20070515
  Transmission Date: 20110219
  Serious: Yes (Other)
  Sender: FDA-Public Use
  Company Number: US-PFIZER INC-2007040129

PATIENT
  Sex: Male
  Weight: 72.6 kg

DRUGS (5)
  1. CHANTIX [Suspect]
     Indication: SMOKING CESSATION THERAPY
     Dates: start: 20070124
  2. CLONAZEPAM [Concomitant]
  3. CIMETIDINE [Concomitant]
  4. ALL OTHER THERAPEUTIC PRODUCTS [Concomitant]
  5. TEA, GREEN [Concomitant]

REACTIONS (2)
  - ABNORMAL DREAMS [None]
  - WEIGHT INCREASED [None]
